FAERS Safety Report 5207561-3 (Version None)
Quarter: 2006Q4

REPORT INFORMATION
  Report Type: 
  Country: None (occurrence: None)
  Receive Date: 20061030
  Receipt Date: 20060721
  Transmission Date: 20070319
  Serious: No
  Sender: FDA-Public Use
  Company Number: 255679

PATIENT
  Age: 59 Year
  Sex: Female
  Weight: 67.1 kg

DRUGS (4)
  1. LEVEMIR [Suspect]
     Indication: DIABETES MELLITUS INSULIN-DEPENDENT
     Dosage: SEE IMAGE
     Route: 058
     Dates: start: 20060601, end: 20060701
  2. LEVEMIR [Suspect]
     Indication: DIABETES MELLITUS INSULIN-DEPENDENT
     Dosage: SEE IMAGE
     Route: 058
     Dates: start: 20060701
  3. NOVOLOG [Suspect]
     Indication: DIABETES MELLITUS INSULIN-DEPENDENT
     Dosage: SLIDING SCALE, TID, SUBCUTANEOUS
     Route: 058
     Dates: start: 20060601
  4. LISINOPRIL [Concomitant]

REACTIONS (1)
  - BLOOD GLUCOSE FLUCTUATION [None]
